FAERS Safety Report 24623667 (Version 2)
Quarter: 2025Q3

REPORT INFORMATION
  Report Type: Spontaneous
  Country: JP (occurrence: None)
  Receive Date: 20241115
  Receipt Date: 20250809
  Transmission Date: 20251020
  Serious: Yes (Other)
  Sender: ALEXION PHARMACEUTICALS
  Company Number: JP-ASTRAZENECA-240110756_064320_P_1

PATIENT
  Age: 78 Year
  Sex: Male

DRUGS (2)
  1. ANDEXXA [Suspect]
     Active Substance: ANDEXANET ALFA
     Indication: Cerebral haemorrhage
  2. EDOXABAN [Concomitant]
     Active Substance: EDOXABAN
     Route: 065

REACTIONS (1)
  - Cerebral haematoma [Unknown]
